FAERS Safety Report 7900976-1 (Version None)
Quarter: 2011Q4

REPORT INFORMATION
  Report Type: 
  Country: None (occurrence: None)
  Receive Date: 20111104
  Receipt Date: 20111026
  Transmission Date: 20120403
  Serious: Yes (Hospitalization)
  Sender: FDA-Public Use
  Company Number: OMPQ-NO-1110S-1653

PATIENT
  Age: 53 Year
  Sex: Female

DRUGS (1)
  1. OMNIPAQUE 70 [Suspect]
     Dosage: 10 ML, SINGLE DOSE,
     Dates: start: 20111025, end: 20111025

REACTIONS (5)
  - SYNCOPE [None]
  - CONTUSION [None]
  - FALL [None]
  - HYPOTENSION [None]
  - CRANIOCEREBRAL INJURY [None]
